FAERS Safety Report 5329963-7 (Version None)
Quarter: 2007Q2

REPORT INFORMATION
  Report Type: 
  Country: None (occurrence: None)
  Receive Date: 20070521
  Receipt Date: 20070511
  Transmission Date: 20071010
  Serious: Yes (Hospitalization)
  Sender: FDA-Public Use
  Company Number: IN-ASTRAZENECA-2007AP02032

PATIENT
  Age: 22367 Day
  Sex: Female

DRUGS (5)
  1. ZD6474 [Suspect]
     Indication: NON-SMALL CELL LUNG CANCER
     Route: 048
     Dates: start: 20070117
  2. DOCETAXEL [Suspect]
     Indication: NON-SMALL CELL LUNG CANCER
     Route: 042
     Dates: start: 20070117, end: 20070117
  3. DOCETAXEL [Suspect]
     Route: 042
     Dates: start: 20070205, end: 20070205
  4. DOCETAXEL [Suspect]
     Route: 042
     Dates: start: 20070226, end: 20070226
  5. DOCETAXEL [Suspect]
     Route: 042
     Dates: start: 20070321, end: 20070321

REACTIONS (1)
  - GASTROENTERITIS [None]
